FAERS Safety Report 11216354 (Version 1)
Quarter: 2015Q2

REPORT INFORMATION
  Report Type: Spontaneous
  Country: US (occurrence: US)
  Receive Date: 20150624
  Receipt Date: 20150624
  Transmission Date: 20150821
  Serious: No
  Sender: FDA-Public Use
  Company Number: US-TEVA-573015USA

PATIENT
  Sex: Female

DRUGS (1)
  1. TREANDA [Suspect]
     Active Substance: BENDAMUSTINE HYDROCHLORIDE
     Indication: LYMPHOMA
     Route: 065

REACTIONS (2)
  - Lymphadenopathy [Not Recovered/Not Resolved]
  - Spleen disorder [Unknown]
